FAERS Safety Report 14224542 (Version 4)
Quarter: 2018Q2

REPORT INFORMATION
  Report Type: Spontaneous
  Country: IT (occurrence: IT)
  Receive Date: 20171127
  Receipt Date: 20180417
  Transmission Date: 20180711
  Serious: Yes (Life-Threatening, Hospitalization, Other)
  Sender: FDA-Public Use
  Company Number: IT-CONCORDIA PHARMACEUTICALS INC.-GSH201711-006463

PATIENT
  Age: 76 Year
  Weight: 56 kg

DRUGS (14)
  1. DIGOXIN. [Suspect]
     Active Substance: DIGOXIN
     Indication: HYPOTENSION
     Dosage: 0.250 MG, QD
  2. DIGOXIN. [Suspect]
     Active Substance: DIGOXIN
     Dosage: 1.91  (PRE-DIALYSIS DIGOXIN)
     Dates: start: 20160301
  3. DIGOXIN. [Suspect]
     Active Substance: DIGOXIN
     Dosage: 4.94
     Dates: start: 20160217
  4. DIGOXIN. [Suspect]
     Active Substance: DIGOXIN
     Dosage: 2.08  (PRE-DIALYSIS DIGOXIN) AND 1.20 (POST-DIALYSIS DIGOXIN)
     Dates: start: 20160229
  5. DIGOXIN. [Suspect]
     Active Substance: DIGOXIN
  6. DIGOXIN. [Suspect]
     Active Substance: DIGOXIN
     Dosage: 4.94 NANOGR/ML; THE DOSE OF THE PRESCRIBED DRUG WAS HALVED
     Dates: start: 20160219
  7. DIGOXIN. [Suspect]
     Active Substance: DIGOXIN
     Dosage: 3.09 NANOGR/ML
     Dates: start: 20160224
  8. DIGOXIN. [Suspect]
     Active Substance: DIGOXIN
     Dosage: 3.68 (PRE-DIALYSIS DIGOXIN)
     Dates: start: 20160225
  9. DIGOXIN. [Suspect]
     Active Substance: DIGOXIN
     Dosage: 3.09
     Dates: start: 20160224
  10. DIGOXIN. [Suspect]
     Active Substance: DIGOXIN
     Dosage: 3.47 (PRE-DIALYSIS DIGOXIN) AND 2.15 (POST-DIALYSIS DIGOXIN)
     Dates: start: 20160226
  11. DIGOXIN. [Suspect]
     Active Substance: DIGOXIN
     Indication: ATRIAL FLUTTER
     Dosage: 2 DF, (0.250 MG LOADING DOSE)
     Dates: start: 20160204
  12. DIGOXIN. [Suspect]
     Active Substance: DIGOXIN
     Dosage: 4.02
     Dates: start: 20160222
  13. DIGOXIN. [Suspect]
     Active Substance: DIGOXIN
     Dosage: 2.56  (PRE-DIALYSIS DIGOXIN) AND 1.66 (POST-DIALYSIS DIGOXIN)
     Dates: start: 20160227
  14. DIGOXIN. [Suspect]
     Active Substance: DIGOXIN

REACTIONS (11)
  - Sinus bradycardia [Recovered/Resolved]
  - Toxicity to various agents [Unknown]
  - Hypotension [Recovered/Resolved]
  - Retching [Recovered/Resolved]
  - Heart rate decreased [Recovered/Resolved]
  - Toxicity to various agents [Unknown]
  - Electrocardiogram ST segment depression [Recovered/Resolved]
  - Ataxia [Recovered/Resolved]
  - Visual acuity reduced [Recovered/Resolved]
  - Toxicity to various agents [Recovered/Resolved]
  - Headache [Recovered/Resolved]

NARRATIVE: CASE EVENT DATE: 2016
